FAERS Safety Report 21911873 (Version 2)
Quarter: 2023Q1

REPORT INFORMATION
  Report Type: Spontaneous
  Country: JP (occurrence: JP)
  Receive Date: 20230125
  Receipt Date: 20230223
  Transmission Date: 20230418
  Serious: Yes (Hospitalization)
  Sender: FDA-Public Use
  Company Number: JP-Eisai-202213296_LEN_P_1

PATIENT
  Age: 83 Year
  Sex: Female

DRUGS (1)
  1. LENVATINIB [Suspect]
     Active Substance: LENVATINIB
     Indication: Papillary thyroid cancer
     Route: 048
     Dates: start: 20220314, end: 20220318

REACTIONS (1)
  - Thyroid haemorrhage [Recovered/Resolved]

NARRATIVE: CASE EVENT DATE: 20220318
